FAERS Safety Report 17863856 (Version 2)
Quarter: 2022Q4

REPORT INFORMATION
  Report Type: Spontaneous
  Country: US (occurrence: US)
  Receive Date: 20200605
  Receipt Date: 20221230
  Transmission Date: 20230113
  Serious: Yes (Hospitalization, Other)
  Sender: FDA-Public Use
  Company Number: US-SUN PHARMACEUTICAL INDUSTRIES LTD-2020R1-249262

PATIENT
  Age: 55 Year
  Sex: Male

DRUGS (4)
  1. ACETAMINOPHEN [Suspect]
     Active Substance: ACETAMINOPHEN
     Indication: Product used for unknown indication
     Dosage: UNK
     Route: 048
  2. FOMEPIZOLE [Concomitant]
     Active Substance: FOMEPIZOLE
     Indication: Product used for unknown indication
     Dosage: 15 MILLIGRAM/KILOGRAM
     Route: 042
  3. ACETYLCYSTEINE [Concomitant]
     Active Substance: ACETYLCYSTEINE
     Indication: Product used for unknown indication
     Dosage: 6.25 MILLIGRAM/KILOGRAM, PER HOUR
     Route: 042
  4. ACETYLCYSTEINE [Concomitant]
     Active Substance: ACETYLCYSTEINE
     Dosage: 6.25 MILLIGRAM/KILOGRAM, PER HOUR
     Route: 042

REACTIONS (4)
  - Overdose [Unknown]
  - Unresponsive to stimuli [Unknown]
  - Metabolic acidosis [Unknown]
  - Toxicity to various agents [Unknown]
